FAERS Safety Report 6824499-6 (Version None)
Quarter: 2010Q3

REPORT INFORMATION
  Report Type: 
  Country: None (occurrence: None)
  Receive Date: 20100708
  Receipt Date: 20061101
  Transmission Date: 20110219
  Serious: No
  Sender: FDA-Public Use
  Company Number: US-PFIZER INC-2006136366

PATIENT
  Sex: Female
  Weight: 54.88 kg

DRUGS (7)
  1. CHANTIX [Suspect]
     Indication: SMOKING CESSATION THERAPY
     Dates: start: 20061030
  2. ZOLOFT [Concomitant]
  3. ATENOLOL [Concomitant]
     Indication: HYPERTENSION
  4. BENICAR [Concomitant]
     Indication: HYPERTENSION
  5. SYNTHROID [Concomitant]
  6. TIOTROPIUM BROMIDE [Concomitant]
     Route: 055
  7. ADVAIR DISKUS 100/50 [Concomitant]
     Route: 055

REACTIONS (2)
  - ABNORMAL DREAMS [None]
  - NAUSEA [None]
